FAERS Safety Report 13276293 (Version 2)
Quarter: 2017Q3

REPORT INFORMATION
  Report Type: Spontaneous
  Country: US (occurrence: US)
  Receive Date: 20170228
  Receipt Date: 20170721
  Transmission Date: 20171127
  Serious: No
  Sender: FDA-Public Use
  Company Number: US-JNJFOC-20170223986

PATIENT
  Sex: Female

DRUGS (2)
  1. TRAMADOL HYDROCHLORIDE. [Suspect]
     Active Substance: TRAMADOL HYDROCHLORIDE
     Indication: PAIN
     Route: 065
  2. ULTRAM [Suspect]
     Active Substance: TRAMADOL HYDROCHLORIDE
     Indication: PAIN
     Route: 048

REACTIONS (5)
  - Malaise [Unknown]
  - Dizziness [Unknown]
  - Product lot number issue [Unknown]
  - Palpitations [Unknown]
  - Agitation [Unknown]

NARRATIVE: CASE EVENT DATE: 20170223
